FAERS Safety Report 5466374-8 (Version None)
Quarter: 2007Q3

REPORT INFORMATION
  Report Type: 
  Country: None (occurrence: None)
  Receive Date: 20070920
  Receipt Date: 20070912
  Transmission Date: 20080115
  Serious: Yes (Other)
  Sender: FDA-Public Use
  Company Number: CHPA2007US09625

PATIENT
  Age: 30 Month
  Sex: Female
  Weight: 15.9 kg

DRUGS (1)
  1. TRIAMINIC SRT [Suspect]
     Indication: COUGH
     Dosage: 1 TSP, ONCE/SINGLE, ORAL
     Route: 048
     Dates: start: 20070816, end: 20070816

REACTIONS (1)
  - FEBRILE CONVULSION [None]
